FAERS Safety Report 14154339 (Version 2)
Quarter: 2018Q1

REPORT INFORMATION
  Report Type: Report from Study
  Country: US (occurrence: US)
  Receive Date: 20171102
  Receipt Date: 20180214
  Transmission Date: 20180508
  Serious: No
  Sender: FDA-Public Use
  Company Number: US-PUMA BIOTECHNOLOGY, LTD.-2017US011830

PATIENT

DRUGS (1)
  1. NERLYNX [Suspect]
     Active Substance: NERATINIB
     Indication: BREAST CANCER
     Dosage: 240 MG, DAILY
     Route: 048
     Dates: start: 20170817

REACTIONS (6)
  - Diarrhoea [Recovered/Resolved]
  - Decreased appetite [Recovering/Resolving]
  - Constipation [Recovered/Resolved]
  - Fatigue [Recovering/Resolving]
  - Liver function test increased [Unknown]
  - Stomatitis [Recovering/Resolving]

NARRATIVE: CASE EVENT DATE: 201708
